FAERS Safety Report 12678486 (Version 1)
Quarter: 2016Q3

REPORT INFORMATION
  Report Type: Report from Study
  Country: US (occurrence: US)
  Receive Date: 20160823
  Receipt Date: 20160823
  Transmission Date: 20161109
  Serious: Yes (Death)
  Sender: FDA-Public Use
  Company Number: US-ASTRAZENECA-2016SE84986

PATIENT
  Age: 22564 Day
  Sex: Male

DRUGS (7)
  1. MELATONIN [Concomitant]
     Active Substance: MELATONIN
  2. CALCIUM+D [Concomitant]
     Active Substance: CALCIUM\VITAMIN D
  3. TAGRISSO [Suspect]
     Active Substance: OSIMERTINIB
     Indication: NON-SMALL CELL LUNG CANCER
     Route: 048
     Dates: start: 20160401
  4. FOLIC ACID. [Concomitant]
     Active Substance: FOLIC ACID
  5. CLARITIN [Concomitant]
     Active Substance: LORATADINE
  6. ANTACIDS [Concomitant]
     Active Substance: UNSPECIFIED INGREDIENT
  7. VITAMIN D3 [Concomitant]
     Active Substance: CHOLECALCIFEROL

REACTIONS (9)
  - Decreased appetite [Unknown]
  - Death [Fatal]
  - Dyspnoea [Unknown]
  - Vomiting [Unknown]
  - Malaise [Unknown]
  - Nail infection [Unknown]
  - Chest pain [Unknown]
  - Vocal cord paralysis [Unknown]
  - Fatigue [Unknown]

NARRATIVE: CASE EVENT DATE: 20160815
